FAERS Safety Report 10238449 (Version 1)
Quarter: 2014Q2

REPORT INFORMATION
  Report Type: Spontaneous
  Country: GB (occurrence: None)
  Receive Date: 20140612
  Receipt Date: 20140612
  Transmission Date: 20141212
  Serious: Yes (Hospitalization)
  Sender: FDA-Public Use
  Company Number: 2014MPI00666

PATIENT
  Age: 67 Year
  Sex: Male
  Weight: 68 kg

DRUGS (18)
  1. BRENTUXIMAB VEDOTIN [Suspect]
     Indication: HODGKIN^S DISEASE
     Dates: start: 20140425, end: 20140516
  2. FERROUS SULFATE (FERROUS SULFATE) [Concomitant]
  3. ACYCLOVIR (ACYCLOVIR) [Concomitant]
  4. ALLOPURINOL (ALLOPURINOL) [Concomitant]
  5. METOCHLOPRAMIDE (METOCHLOPRAMIDE HYDROCHLORIDE) [Concomitant]
  6. MEROPENEM (MEROPENEM TRIHYDRATE) [Concomitant]
  7. PARACETAMOL (PARACETAMOL) [Concomitant]
  8. CIPROFLOXACIN (CIPROFLOXACIN HYDROCHLORIDE) [Concomitant]
  9. RAMADOL (TRAMADOL HYDROCHLORIDE) [Concomitant]
  10. CLARITHROMYCIN (CLARITHROMYCIN) [Concomitant]
  11. METFORMIN (METFORMIN) [Concomitant]
  12. GLICLAZIDE (GLICLAZIDE) [Concomitant]
  13. GLYCERYL TRINITRATE (GLYCERYL TRINITATE) [Concomitant]
  14. VENLAFAXLINE (VENLAFAXINE) [Concomitant]
  15. RANITIDINE (RANITIDINE HYDROCHLRODIE) [Concomitant]
  16. ASPIRIN (ACETYLSALICYLIC ACID) [Concomitant]
  17. LAXIDO (ELECTROLYTES NOS, MACROGOL 3350) [Concomitant]
  18. THYROXINE (LEVOTHYROXINE SODIUM) [Concomitant]

REACTIONS (1)
  - Gastric ulcer [None]
